FAERS Safety Report 9269371 (Version 1)
Quarter: 2013Q2

REPORT INFORMATION
  Report Type: Spontaneous
  Country: GB (occurrence: GB)
  Receive Date: 20130503
  Receipt Date: 20130503
  Transmission Date: 20140414
  Serious: Yes (Other)
  Sender: FDA-Public Use
  Company Number: GB-UCBSA-084601

PATIENT
  Age: 58 Year
  Sex: Female
  Weight: 108 kg

DRUGS (6)
  1. CO-CODAMOL [Suspect]
     Indication: ANALGESIC THERAPY
     Dosage: DOSE: 2DF
     Route: 048
     Dates: start: 20130303, end: 20130307
  2. LISINOPRIL [Concomitant]
     Indication: HYPERTENSION
     Route: 048
     Dates: start: 20060322
  3. MELOXICAM [Concomitant]
     Indication: OSTEOARTHRITIS
     Route: 048
     Dates: start: 20050127
  4. METFORMIN [Concomitant]
     Indication: TYPE 2 DIABETES MELLITUS
     Route: 048
     Dates: start: 20050616
  5. OMEPRAZOLE [Concomitant]
     Indication: PROPHYLAXIS
     Route: 048
     Dates: start: 20080502
  6. PIOGLITAZONE [Concomitant]
     Indication: TYPE 2 DIABETES MELLITUS
     Route: 048
     Dates: start: 20110308

REACTIONS (3)
  - Joint swelling [Recovered/Resolved]
  - Abdominal distension [Recovered/Resolved]
  - Local swelling [Recovered/Resolved]
